FAERS Safety Report 22248919 (Version 1)
Quarter: 2023Q2

REPORT INFORMATION
  Report Type: Spontaneous
  Country: DE (occurrence: DE)
  Receive Date: 20230425
  Receipt Date: 20230425
  Transmission Date: 20230722
  Serious: No
  Sender: FDA-Public Use
  Company Number: None

PATIENT
  Age: 42 Year
  Sex: Female
  Weight: 125 kg

DRUGS (9)
  1. FINGOLIMOD [Suspect]
     Active Substance: FINGOLIMOD
     Indication: Relapsing-remitting multiple sclerosis
     Dosage: 0.5 MILLIGRAM
     Route: 048
     Dates: start: 20210308
  2. CANDESARTAN [Concomitant]
     Active Substance: CANDESARTAN
     Indication: Product used for unknown indication
     Dosage: 4 MILLIGRAM, QD (EVERY 1 DAY)
     Route: 048
  3. ESCITALOPRAM [Concomitant]
     Active Substance: ESCITALOPRAM OXALATE
     Indication: Depression
     Dosage: 5 MILLIGRAM, QD (EVERY 1 DAY)
     Route: 048
     Dates: start: 20210308
  4. HYPERICUM PERFORATUM WHOLE [Concomitant]
     Active Substance: HYPERICUM PERFORATUM WHOLE
     Indication: Depression
     Dosage: 900 MILLIGRAM, QD (EVERY 1 DAY)
     Route: 048
     Dates: start: 20220427
  5. LEVOTHYROXINE [Concomitant]
     Active Substance: LEVOTHYROXINE
     Indication: Hyperthyroidism
     Dosage: 50 MICROGRAM, QD (EVERY 1 DAY)
     Route: 048
  6. MAVENCLAD [Concomitant]
     Active Substance: CLADRIBINE
     Indication: Multiple sclerosis
     Dosage: 10 MILLIGRAM, QD  (EVERY 1 DAY)
     Route: 048
     Dates: start: 20211004, end: 20211008
  7. MAVENCLAD [Concomitant]
     Active Substance: CLADRIBINE
     Dosage: 10 MILLIGRAM, QD (EVERY 1 DAY)
     Route: 048
     Dates: start: 20221007, end: 20221011
  8. MAVENCLAD [Concomitant]
     Active Substance: CLADRIBINE
     Dosage: 10 MILLIGRAM, QD (EVERY 1 DAY)
     Route: 048
     Dates: start: 20211110, end: 20211114
  9. MAVENCLAD [Concomitant]
     Active Substance: CLADRIBINE
     Dosage: 10 MILLIGRAM, QD (EVERY 1 DAY)
     Route: 048
     Dates: start: 20211111, end: 20211115

REACTIONS (1)
  - Lymphopenia [Not Recovered/Not Resolved]

NARRATIVE: CASE EVENT DATE: 20221214
